FAERS Safety Report 9659443 (Version 1)
Quarter: 2013Q4

REPORT INFORMATION
  Report Type: Spontaneous
  Country: US (occurrence: US)
  Receive Date: 20131031
  Receipt Date: 20131031
  Transmission Date: 20140711
  Serious: Yes (Other)
  Sender: FDA-Public Use
  Company Number: US-JNJFOC-20131018478

PATIENT
  Sex: 0

DRUGS (3)
  1. USTEKINUMAB [Suspect]
     Indication: PSORIASIS
     Dosage: 2 TO 5 MG/KG.
     Route: 058
  2. METHOTREXATE [Suspect]
     Indication: PSORIASIS
     Route: 065
  3. CYCLOSPORINE [Suspect]
     Indication: PSORIASIS
     Route: 065

REACTIONS (1)
  - Blood creatinine increased [Recovered/Resolved]
